FAERS Safety Report 23039516 (Version 1)
Quarter: 2023Q4

REPORT INFORMATION
  Report Type: Spontaneous
  Country: CN (occurrence: CN)
  Receive Date: 20231006
  Receipt Date: 20231006
  Transmission Date: 20240109
  Serious: Yes (Hospitalization, Other)
  Sender: FDA-Public Use
  Company Number: CN-NAPPMUNDI-GBR-2023-0111214

PATIENT
  Age: 59 Year
  Sex: Male

DRUGS (1)
  1. MS CONTIN [Suspect]
     Active Substance: MORPHINE SULFATE
     Indication: Cancer pain
     Dosage: 20 MILLIGRAM, BID
     Route: 048
     Dates: start: 20230920, end: 20230924

REACTIONS (7)
  - Dyschezia [Recovering/Resolving]
  - Dysuria [Recovering/Resolving]
  - Nausea [Recovering/Resolving]
  - Abdominal distension [Recovering/Resolving]
  - Urinary tract obstruction [Unknown]
  - Hypophagia [Unknown]
  - Constipation [Unknown]

NARRATIVE: CASE EVENT DATE: 20230920
